FAERS Safety Report 10183047 (Version 1)
Quarter: 2014Q2

REPORT INFORMATION
  Report Type: Spontaneous
  Country: GB (occurrence: None)
  Receive Date: 20140516
  Receipt Date: 20140516
  Transmission Date: 20141212
  Serious: Yes (Hospitalization)
  Sender: FDA-Public Use
  Company Number: AUR-APL-2014-05613

PATIENT
  Age: 85 Year
  Sex: Male

DRUGS (14)
  1. FLUOXETINE (FLUOXETINE) [Suspect]
     Indication: PRODUCT USED FOR UNKNOWN INDICATION
     Route: 048
     Dates: end: 20140428
  2. APRACLONIDINE (APRACLONIDINE) [Concomitant]
  3. ASPIRIN (ACETYLSALICYLIC ACID) [Concomitant]
  4. CALCICHEW D3 (LEKOVIT CA) [Concomitant]
  5. CARBOMER (CARBOMER) [Concomitant]
  6. INSULIN ISOPHANE HUMAN (PRB) (INSULIN ISOPHANE HUMAN SEMISYNTHETIC) [Concomitant]
  7. LATANOPROST (LANTANOPROST) [Concomitant]
  8. OMEPRAZOLE (OMEPRAZOLE) [Concomitant]
  9. PARACETAMOL (PARACETAMOL) [Concomitant]
  10. RIMEXOLONE (RIMEXOLONE) [Concomitant]
  11. SALBUTAMOL (SALBUTAMOL) [Concomitant]
  12. SERETIDE (SERETIDE) [Concomitant]
  13. TEMAZEPAM (TEMAZEPAM) [Concomitant]
  14. TIOTROPIUM (TIOTROPIUM) (TIOTROPIUM) [Concomitant]

REACTIONS (8)
  - Dysuria [None]
  - Constipation [None]
  - Suprapubic pain [None]
  - Dyspnoea [None]
  - Dry mouth [None]
  - Somnolence [None]
  - Sinus bradycardia [None]
  - Urinary retention [None]
